FAERS Safety Report 6196202-7 (Version None)
Quarter: 2009Q2

REPORT INFORMATION
  Report Type: 
  Country: None (occurrence: None)
  Receive Date: 20090513
  Receipt Date: 20090227
  Transmission Date: 20091009
  Serious: Yes (Hospitalization)
  Sender: FDA-Public Use
  Company Number: ALK_00785_2009

PATIENT
  Sex: Male
  Weight: 122.4712 kg

DRUGS (4)
  1. VIVITROL [Suspect]
     Indication: ALCOHOLISM
     Dosage: 380 MG 1X/MONTH INTRAMUSCULAR
     Route: 030
     Dates: start: 20090109
  2. LITHIUM CARBONATE [Concomitant]
  3. ANTABUSE [Concomitant]
  4. ZOLOFT [Concomitant]

REACTIONS (6)
  - HYPERSENSITIVITY [None]
  - INJECTION SITE INDURATION [None]
  - INJECTION SITE NODULE [None]
  - INJECTION SITE PAIN [None]
  - PYREXIA [None]
  - WHITE BLOOD CELL COUNT INCREASED [None]
